FAERS Safety Report 12816374 (Version 1)
Quarter: 2016Q4

REPORT INFORMATION
  Report Type: Spontaneous
  Country: US (occurrence: US)
  Receive Date: 20161005
  Receipt Date: 20161005
  Transmission Date: 20170207
  Serious: No
  Sender: FDA-Public Use
  Company Number: None

PATIENT
  Age: 41 Year
  Sex: Female
  Weight: 76.95 kg

DRUGS (11)
  1. OXYCODONE [Concomitant]
     Active Substance: OXYCODONE
  2. SPIRIVA [Concomitant]
     Active Substance: TIOTROPIUM BROMIDE MONOHYDRATE
  3. DOUCASTATE [Concomitant]
  4. COLCHICINE. [Concomitant]
     Active Substance: COLCHICINE
  5. ALBUTEROL. [Concomitant]
     Active Substance: ALBUTEROL
  6. PLAQUENIL [Concomitant]
     Active Substance: HYDROXYCHLOROQUINE SULFATE
  7. FISH OIL [Concomitant]
     Active Substance: FISH OIL
  8. HYDROXYZINE PAMOATE 25MG [Suspect]
     Active Substance: HYDROXYZINE PAMOATE
     Indication: ANXIETY
     Dosage: ?          QUANTITY:2 CAPSULE(S);?
     Route: 048
     Dates: start: 20160817, end: 20160916
  9. VITAMIN D [Concomitant]
     Active Substance: CHOLECALCIFEROL
  10. PRENATAL VITAMINS [Concomitant]
     Active Substance: VITAMINS
  11. HYDROXYZINE PAMOATE 25MG [Suspect]
     Active Substance: HYDROXYZINE PAMOATE
     Indication: SLEEP DISORDER
     Dosage: ?          QUANTITY:2 CAPSULE(S);?
     Route: 048
     Dates: start: 20160817, end: 20160916

REACTIONS (2)
  - Hunger [None]
  - Weight increased [None]

NARRATIVE: CASE EVENT DATE: 20160905
